FAERS Safety Report 16431418 (Version 1)
Quarter: 2019Q2

REPORT INFORMATION
  Report Type: Spontaneous
  Country: AU (occurrence: AU)
  Receive Date: 20190614
  Receipt Date: 20190614
  Transmission Date: 20190711
  Serious: Yes (Other)
  Sender: FDA-Public Use
  Company Number: PHHY2019AU136285

PATIENT
  Age: 4 Year
  Sex: Female

DRUGS (6)
  1. PIMECROLIMUS. [Concomitant]
     Active Substance: PIMECROLIMUS
     Indication: DERMATITIS ATOPIC
     Dosage: 1 UNK, UNK
     Route: 061
  2. MOMETASONE [Suspect]
     Active Substance: MOMETASONE
     Indication: DERMATITIS ATOPIC
     Dosage: 15 G, QW
     Route: 061
  3. METHYLPREDNISOLONE. [Suspect]
     Active Substance: METHYLPREDNISOLONE
     Indication: DERMATITIS ATOPIC
     Dosage: 1 %, UNK
     Route: 061
  4. CALCIPOTRIOL [Suspect]
     Active Substance: CALCIPOTRIENE
     Indication: DERMATITIS ATOPIC
     Route: 061
  5. BETAMETHASONE. [Suspect]
     Active Substance: BETAMETHASONE
     Indication: DERMATITIS ATOPIC
     Route: 061
  6. HYDROCORTISONE. [Suspect]
     Active Substance: HYDROCORTISONE
     Indication: DERMATITIS ATOPIC
     Route: 061

REACTIONS (11)
  - Steroid withdrawal syndrome [Unknown]
  - Burning sensation [Unknown]
  - Temperature regulation disorder [Unknown]
  - Skin texture abnormal [Unknown]
  - Pain [Unknown]
  - Erythema [Unknown]
  - Alopecia [Unknown]
  - Eyelid oedema [Unknown]
  - Skin wrinkling [Unknown]
  - Eczema [Unknown]
  - Oedema peripheral [Unknown]
